FAERS Safety Report 11915762 (Version 1)
Quarter: 2016Q1

REPORT INFORMATION
  Report Type: Spontaneous
  Country: US (occurrence: None)
  Receive Date: 20160113
  Receipt Date: 20160113
  Transmission Date: 20160526
  Serious: Yes (Hospitalization)
  Sender: FDA-Public Use
  Company Number: None

PATIENT
  Age: 78 Year
  Sex: Female

DRUGS (1)
  1. DIGOXIN 0.125MG WALGREEN [Suspect]
     Active Substance: DIGOXIN
     Indication: ATRIAL FIBRILLATION
     Dosage: CHRONIC LONG TERM USE
     Route: 048

REACTIONS (2)
  - Asthenia [None]
  - Drug level above therapeutic [None]

NARRATIVE: CASE EVENT DATE: 20151024
